FAERS Safety Report 9114688 (Version 1)
Quarter: 2013Q1

REPORT INFORMATION
  Report Type: Spontaneous
  Country: CA (occurrence: None)
  Receive Date: 20130129
  Receipt Date: 20130129
  Transmission Date: 20140127
  Serious: Yes (Other)
  Sender: FDA-Public Use
  Company Number: CA-010649

PATIENT
  Age: 73 Year
  Sex: Male

DRUGS (3)
  1. DEGARELIX (FIRMAGON) 80 MG [Suspect]
     Indication: PROSTATE CANCER
     Dosage: ONE INJECTION PER MONTH.
     Route: 058
  2. GLYBURIDE [Concomitant]
  3. METFORMIN [Concomitant]

REACTIONS (5)
  - Blood glucose decreased [None]
  - Asthenia [None]
  - Pallor [None]
  - Fatigue [None]
  - Back pain [None]
